FAERS Safety Report 7574492-3 (Version None)
Quarter: 2011Q2

REPORT INFORMATION
  Report Type: 
  Country: None (occurrence: None)
  Receive Date: 20110627
  Receipt Date: 20110610
  Transmission Date: 20111010
  Serious: Yes (Hospitalization)
  Sender: FDA-Public Use
  Company Number: FR-BAYER-2011-051127

PATIENT
  Age: 71 Year
  Sex: Female

DRUGS (22)
  1. TARGOCID [Suspect]
     Indication: APLASIA
     Dosage: 400 MG, BID
     Route: 042
     Dates: start: 20110217, end: 20110222
  2. TARGOCID [Suspect]
     Indication: PYREXIA
  3. VALACYCLOVIR HYDROCHLORIDE [Suspect]
     Dosage: 2 DF, UNK
     Route: 048
     Dates: start: 20110131, end: 20110221
  4. TERCIAN [Concomitant]
  5. ROCEPHIN [Concomitant]
     Indication: APLASIA
     Dosage: 2 G, QD
     Dates: start: 20110213, end: 20110217
  6. OFLOXACIN [Concomitant]
     Indication: PYREXIA
  7. CIPROFLOXACIN [Suspect]
     Indication: PYREXIA
  8. CLADRIBINE [Suspect]
     Indication: HAIRY CELL LEUKAEMIA
     Dosage: 8.5 MG, QD
     Route: 058
     Dates: start: 20110207, end: 20110211
  9. TIENAM [Suspect]
     Indication: PYREXIA
  10. ACETAMINOPHEN W/ PROPOXYPHENE HCL [Concomitant]
  11. FOLIC ACID [Concomitant]
     Dosage: 10 MG, QD
     Dates: start: 20110131
  12. NEULASTA [Concomitant]
     Dosage: UNK
     Dates: start: 20110212, end: 20110213
  13. BACTRIM [Suspect]
     Dosage: 1 DF, TIW
     Route: 048
     Dates: start: 20110131, end: 20110213
  14. CACIT D3 [Concomitant]
  15. ROCEPHIN [Concomitant]
     Indication: PYREXIA
  16. GENTAMICIN [Concomitant]
     Indication: APLASIA
     Dosage: UNK
     Dates: start: 20110214, end: 20110215
  17. OFLOXACIN [Concomitant]
     Indication: APLASIA
     Dosage: UNK
     Dates: start: 20110213, end: 20110213
  18. CIPROFLOXACIN [Suspect]
     Indication: APLASIA
     Dosage: 2 DF, UNK
     Route: 048
     Dates: start: 20110217, end: 20110222
  19. CLINDAMYCIN HCL [Suspect]
     Indication: TOXOPLASMOSIS
     Dosage: 600 MG, TID
     Route: 048
     Dates: start: 20110218, end: 20110222
  20. TIENAM [Suspect]
     Indication: APLASIA
     Dosage: UNK
     Route: 042
     Dates: start: 20110217, end: 20110223
  21. GENTAMICIN [Concomitant]
     Indication: PYREXIA
  22. STABLON [Concomitant]
     Dosage: UNK

REACTIONS (1)
  - DRUG ERUPTION [None]
